FAERS Safety Report 21502189 (Version 1)
Quarter: 2022Q4

REPORT INFORMATION
  Report Type: Spontaneous
  Country: US (occurrence: US)
  Receive Date: 20221025
  Receipt Date: 20221025
  Transmission Date: 20230112
  Serious: No
  Sender: FDA-Public Use
  Company Number: US-VIIV HEALTHCARE LIMITED-US2022150675

PATIENT
  Age: 32 Year
  Sex: Male

DRUGS (4)
  1. CABENUVA [Interacting]
     Active Substance: CABOTEGRAVIR\RILPIVIRINE
     Indication: HIV infection
     Dosage: UNK UNK, Z, 600/900 MG Q2M
     Dates: start: 20220421, end: 20220825
  2. CABENUVA [Interacting]
     Active Substance: CABOTEGRAVIR\RILPIVIRINE
  3. CABENUVA [Interacting]
     Active Substance: CABOTEGRAVIR\RILPIVIRINE
  4. OXCARBAZEPINE [Interacting]
     Active Substance: OXCARBAZEPINE
     Indication: Mental disorder
     Dosage: UNKNOWN

REACTIONS (1)
  - Labelled drug-drug interaction issue [Unknown]

NARRATIVE: CASE EVENT DATE: 20220825
